FAERS Safety Report 24655850 (Version 1)
Quarter: 2024Q4

REPORT INFORMATION
  Report Type: Report from Study
  Country: US (occurrence: US)
  Receive Date: 20241124
  Receipt Date: 20241124
  Transmission Date: 20250115
  Serious: Yes (Hospitalization)
  Sender: ALEXION PHARMACEUTICALS
  Company Number: US-AstraZeneca-CH-00751607A

PATIENT

DRUGS (4)
  1. DAPAGLIFLOZIN [Suspect]
     Active Substance: DAPAGLIFLOZIN
     Dosage: UNK
  2. DAPAGLIFLOZIN [Suspect]
     Active Substance: DAPAGLIFLOZIN
     Dosage: UNK
  3. DAPAGLIFLOZIN [Suspect]
     Active Substance: DAPAGLIFLOZIN
     Dosage: UNK
  4. DAPAGLIFLOZIN [Suspect]
     Active Substance: DAPAGLIFLOZIN
     Dosage: UNK

REACTIONS (17)
  - Chest pain [Unknown]
  - Blood glucose increased [Unknown]
  - Glycosylated haemoglobin increased [Unknown]
  - Pollakiuria [Unknown]
  - Angiogram [Unknown]
  - Heart rate decreased [Unknown]
  - Atrioventricular block [Unknown]
  - Throat irritation [Unknown]
  - Bed bug infestation [Unknown]
  - Bronchitis [Unknown]
  - Glucose urine [Unknown]
  - Troponin T [Unknown]
  - Dialysis [Unknown]
  - Cardiomegaly [Unknown]
  - Hypertension [Unknown]
  - Polydipsia [Unknown]
  - Dry throat [Unknown]
